FAERS Safety Report 4694154-X (Version None)
Quarter: 2005Q2

REPORT INFORMATION
  Report Type: 
  Country: None (occurrence: None)
  Receive Date: 20050617
  Receipt Date: 20050617
  Transmission Date: 20051028
  Serious: Yes (Hospitalization)
  Sender: FDA-Public Use
  Company Number: None

PATIENT
  Age: 23 Year
  Sex: Female
  Weight: 55.3388 kg

DRUGS (2)
  1. LEVOTHYROXINE 88 MCG SANDOZ [Suspect]
     Indication: HYPOTHYROIDISM
     Dosage: 88 MCG DAILY ORAL
     Route: 048
     Dates: start: 20040817, end: 20050126
  2. LEVOTHYROXINE SODIUM [Suspect]
     Indication: HYPOTHYROIDISM
     Dosage: 100 MCG DAILY ORAL
     Route: 048
     Dates: start: 20050126, end: 20050410

REACTIONS (3)
  - BLOOD THYROID STIMULATING HORMONE INCREASED [None]
  - CONVULSION [None]
  - THERAPEUTIC RESPONSE UNEXPECTED WITH DRUG SUBSTITUTION [None]
